FAERS Safety Report 5512228-8 (Version None)
Quarter: 2007Q4

REPORT INFORMATION
  Report Type: 
  Country: None (occurrence: None)
  Receive Date: 20071112
  Receipt Date: 20071031
  Transmission Date: 20080405
  Serious: Yes (Other)
  Sender: FDA-Public Use
  Company Number: PHNU2007DE03322

PATIENT
  Age: 62 Year
  Sex: Male
  Weight: 105 kg

DRUGS (11)
  1. OXCARBAZEPINE [Suspect]
     Indication: EPILEPSY
     Dosage: 1800 MG/D
     Route: 048
     Dates: start: 20010101
  2. METOPROLOL SUCCINATE [Concomitant]
  3. NEXIUM [Suspect]
  4. AMLODIPINE [Concomitant]
  5. NOVALGIN [Concomitant]
  6. OXYGESIC [Concomitant]
  7. KARVEA [Concomitant]
  8. KEPPRA [Concomitant]
     Dosage: 500 MG, TID
  9. TOPAMAX [Concomitant]
     Dosage: 50 MG, TID
  10. LEVETIRACETAM [Concomitant]
     Dosage: 4500 MG/D
     Route: 048
     Dates: start: 20010101
  11. TOPIRAMATE [Concomitant]
     Dosage: 150 MG/D
     Route: 048
     Dates: start: 20010101

REACTIONS (6)
  - BLOOD ANTIDIURETIC HORMONE DECREASED [None]
  - BLOOD OSMOLARITY DECREASED [None]
  - CEREBRAL ISCHAEMIA [None]
  - HYPOKALAEMIA [None]
  - HYPONATRAEMIA [None]
  - TRAUMATIC BRAIN INJURY [None]
